FAERS Safety Report 5939480-9 (Version None)
Quarter: 2008Q4

REPORT INFORMATION
  Report Type: 
  Country: None (occurrence: None)
  Receive Date: 20081103
  Receipt Date: 20081027
  Transmission Date: 20090506
  Serious: Yes (Other)
  Sender: FDA-Public Use
  Company Number: US-ALLERGAN-0813639US

PATIENT
  Sex: Female

DRUGS (2)
  1. BOTOX [Suspect]
     Indication: DYSTONIA
     Dosage: 550 UNITS, SINGLE
     Route: 030
     Dates: start: 20081016, end: 20081016
  2. BOTOX [Suspect]
     Dosage: 400 UNITS, SINGLE
     Route: 030

REACTIONS (6)
  - ASTHENIA [None]
  - CONSTIPATION [None]
  - DYSPHAGIA [None]
  - DYSPNOEA [None]
  - FATIGUE [None]
  - VISION BLURRED [None]
